FAERS Safety Report 7677421-7 (Version None)
Quarter: 2011Q3

REPORT INFORMATION
  Report Type: 
  Country: None (occurrence: None)
  Receive Date: 20110811
  Receipt Date: 20100824
  Transmission Date: 20111222
  Serious: No
  Sender: FDA-Public Use
  Company Number: US-BRISTOL-MYERS SQUIBB COMPANY-15243587

PATIENT
  Sex: Male

DRUGS (3)
  1. NORVIR [Suspect]
  2. REYATAZ [Suspect]
     Indication: HIV INFECTION
     Route: 048
  3. TRUVADA [Suspect]

REACTIONS (1)
  - DRUG SCREEN FALSE POSITIVE [None]
